FAERS Safety Report 15167144 (Version 1)
Quarter: 2018Q3

REPORT INFORMATION
  Report Type: Spontaneous
  Country: NL (occurrence: NL)
  Receive Date: 20180719
  Receipt Date: 20180719
  Transmission Date: 20181010
  Serious: Yes (Hospitalization)
  Sender: FDA-Public Use
  Company Number: PHHY2018NL036998

PATIENT

DRUGS (6)
  1. OXALIPLATIN. [Suspect]
     Active Substance: OXALIPLATIN
     Indication: COLORECTAL CANCER
     Dosage: 85 MG/M2, UNK (DATE OF MOST RECENT DOSE PRIOR TO SAE: 28/MAR/2018IN 120 MINUTES ON DAY 1)
     Route: 042
  2. OXALIPLATIN. [Suspect]
     Active Substance: OXALIPLATIN
     Dosage: UNK
  3. 5?FLUOROURACIL [Suspect]
     Active Substance: FLUOROURACIL
     Dosage: 400 MG/M2, UNK (DATE OF MOST RECENT DOSE PRIOR TO SAE: 28/MAR/2018WITH IN 4 MINUTES ON DAY 1)
     Route: 040
  4. LEUCOVORIN. [Suspect]
     Active Substance: LEUCOVORIN
     Indication: COLORECTAL CANCER
     Dosage: 400 MG/M2, Q2W (DATE OF MOST RECENT DOSE PRIOR TO SAE: 28/MAR/2018 IN 120 MINUTES ON DAY 1)
     Route: 042
     Dates: start: 20180314
  5. 5?FLUOROURACIL [Suspect]
     Active Substance: FLUOROURACIL
     Indication: COLORECTAL CANCER
     Dosage: 2400 MG/M2, Q2W (DATE OF MOST RECENT DOSE PRIOR TO SAE: 28/MAR/2018IN 46 HOURS)
     Route: 042
     Dates: start: 20180314
  6. BEVACIZUMAB. [Suspect]
     Active Substance: BEVACIZUMAB
     Indication: COLORECTAL CANCER
     Dosage: (DATE OF MOST RECENT DOSE PRIOR TO SAE: 28/MAR/2018IN 1530 MINUTES ON DAY 1)5 MG/KG, Q2W
     Route: 042
     Dates: start: 20180314

REACTIONS (2)
  - Lung infection [Recovered/Resolved]
  - Upper respiratory tract infection [Recovered/Resolved]

NARRATIVE: CASE EVENT DATE: 20180331
